FAERS Safety Report 7207685-5 (Version None)
Quarter: 2011Q1

REPORT INFORMATION
  Report Type: 
  Country: None (occurrence: None)
  Receive Date: 20110103
  Receipt Date: 20101227
  Transmission Date: 20110831
  Serious: Yes (Other)
  Sender: FDA-Public Use
  Company Number: US-PFIZER INC-2010181082

PATIENT
  Sex: Male

DRUGS (2)
  1. VIAGRA [Suspect]
     Dosage: 100 MG, UNK
  2. ALCOHOL [Interacting]
     Dosage: UNK

REACTIONS (3)
  - VISION BLURRED [None]
  - DIZZINESS [None]
  - DRUG INTERACTION [None]
